FAERS Safety Report 24651960 (Version 1)
Quarter: 2024Q4

REPORT INFORMATION
  Report Type: Spontaneous
  Country: US (occurrence: None)
  Receive Date: 20241121
  Receipt Date: 20241121
  Transmission Date: 20250115
  Serious: Yes (Other)
  Sender: Public
  Company Number: None

PATIENT
  Age: 75 Year
  Sex: Female
  Weight: 46.72 kg

DRUGS (5)
  1. IBANDRONATE SODIUM [Suspect]
     Active Substance: IBANDRONATE SODIUM
     Route: 048
     Dates: start: 20241102, end: 20241102
  2. VITAMINS [Concomitant]
     Active Substance: VITAMINS
  3. LEVOTHYROXINE [Concomitant]
     Active Substance: LEVOTHYROXINE
  4. ROSUVASTATIN CALCIUM [Concomitant]
     Active Substance: ROSUVASTATIN CALCIUM
  5. NORVASC [Concomitant]
     Active Substance: AMLODIPINE BESYLATE

REACTIONS (7)
  - Abdominal pain upper [None]
  - Abdominal pain [None]
  - Arthralgia [None]
  - Headache [None]
  - Vomiting [None]
  - Dysstasia [None]
  - Drug hypersensitivity [None]

NARRATIVE: CASE EVENT DATE: 20241102
